FAERS Safety Report 7784298-8 (Version None)
Quarter: 2011Q3

REPORT INFORMATION
  Report Type: 
  Country: None (occurrence: None)
  Receive Date: 20110928
  Receipt Date: 20110921
  Transmission Date: 20111222
  Serious: Yes (Death, Hospitalization, Other)
  Sender: FDA-Public Use
  Company Number: SE-ELI_LILLY_AND_COMPANY-SE201108002600

PATIENT
  Sex: Male

DRUGS (11)
  1. OMEPRAZOL SANDOZ [Concomitant]
     Dosage: 20 MG, UNK
  2. CARBOPLATIN [Concomitant]
     Indication: LUNG NEOPLASM MALIGNANT
     Dosage: UNK
     Route: 042
     Dates: start: 20110607, end: 20110607
  3. VOLTAREN [Concomitant]
     Dosage: 50 MG, UNK
  4. ALIMTA [Suspect]
     Indication: LUNG NEOPLASM MALIGNANT
     Dosage: 500 MG, UNKNOWN
     Route: 065
     Dates: start: 20110607, end: 20110607
  5. ACETAMINOPHEN [Concomitant]
     Dosage: 500 MG, UNK
  6. BEHEPAN [Concomitant]
     Dosage: 1 MG/ML
  7. DICLOFENAC T RATIOPHARM [Concomitant]
     Dosage: 50 MG, UNK
  8. VITAPLEX MINERAL [Concomitant]
  9. TRAMADOL HCL [Concomitant]
     Dosage: 50 MG, UNK
  10. ONDANSETRON [Concomitant]
  11. BETAPRED [Concomitant]
     Dosage: 0.5 MG, UNK

REACTIONS (5)
  - GENERAL PHYSICAL HEALTH DETERIORATION [None]
  - COLITIS [None]
  - SEPTIC SHOCK [None]
  - ADVERSE DRUG REACTION [None]
  - CHEST PAIN [None]
